FAERS Safety Report 21180318 (Version 1)
Quarter: 2022Q3

REPORT INFORMATION
  Report Type: Report from Study
  Country: US (occurrence: US)
  Receive Date: 20220806
  Receipt Date: 20220806
  Transmission Date: 20221026
  Serious: Yes (Other)
  Sender: FDA-Public Use
  Company Number: US-CELGENE-USA-20220207238

PATIENT

DRUGS (1)
  1. ABECMA [Suspect]
     Active Substance: IDECABTAGENE VICLEUCEL
     Indication: Plasma cell myeloma
     Dosage: FREQUENCY TEXT: SINGLE
     Route: 042

REACTIONS (13)
  - Seizure [Unknown]
  - Cytokine release syndrome [Unknown]
  - Immunodeficiency [Unknown]
  - Hypertension [Unknown]
  - White blood cell count decreased [Unknown]
  - Anaemia [Unknown]
  - Balance disorder [Unknown]
  - Somnolence [Unknown]
  - Altered state of consciousness [Unknown]
  - Hypotension [Unknown]
  - Nausea [Unknown]
  - Diarrhoea [Unknown]
  - Heart rate increased [Unknown]
